FAERS Safety Report 13075839 (Version 1)
Quarter: 2016Q4

REPORT INFORMATION
  Report Type: Spontaneous
  Country: US (occurrence: US)
  Receive Date: 20161229
  Receipt Date: 20161229
  Transmission Date: 20170207
  Serious: Yes (Disabling)
  Sender: FDA-Public Use
  Company Number: None

PATIENT
  Age: 51 Year
  Sex: Female
  Weight: 48.6 kg

DRUGS (8)
  1. EFFEXOR [Concomitant]
     Active Substance: VENLAFAXINE HYDROCHLORIDE
  2. ESTRADIOL TRANSDERMAL SYSTEM [Concomitant]
     Active Substance: ESTRADIOL
  3. TRAZODONE [Concomitant]
     Active Substance: TRAZODONE HYDROCHLORIDE
  4. VITAMIN D [Concomitant]
     Active Substance: CHOLECALCIFEROL
  5. CEFTIN-ACNE [Concomitant]
  6. ROPINIROLE. [Concomitant]
     Active Substance: ROPINIROLE
  7. LORAZEPAM. [Concomitant]
     Active Substance: LORAZEPAM
  8. LEVAQUIN [Suspect]
     Active Substance: LEVOFLOXACIN
     Indication: SINUSITIS
     Dates: start: 20161012, end: 20161026

REACTIONS (7)
  - Product use issue [None]
  - Anxiety [None]
  - Weight decreased [None]
  - Panic attack [None]
  - Abdominal pain upper [None]
  - Headache [None]
  - Impaired work ability [None]

NARRATIVE: CASE EVENT DATE: 20161028
